FAERS Safety Report 18265829 (Version 1)
Quarter: 2020Q3

REPORT INFORMATION
  Report Type: Spontaneous
  Country: US (occurrence: US)
  Receive Date: 20200915
  Receipt Date: 20200915
  Transmission Date: 20201103
  Serious: No
  Sender: FDA-Public Use
  Company Number: US-STRIDES ARCOLAB LIMITED-2020SP006839

PATIENT

DRUGS (1)
  1. TACROLIMUS. [Suspect]
     Active Substance: TACROLIMUS
     Indication: PERIORAL DERMATITIS
     Dosage: UNK (OINTMENT)
     Route: 061

REACTIONS (2)
  - Photosensitivity reaction [Unknown]
  - Off label use [Unknown]
